FAERS Safety Report 7298713-X (Version None)
Quarter: 2011Q1

REPORT INFORMATION
  Report Type: 
  Country: None (occurrence: None)
  Receive Date: 20110217
  Receipt Date: 20110210
  Transmission Date: 20110831
  Serious: Yes (Other)
  Sender: FDA-Public Use
  Company Number: JP-PFIZER INC-2011031716

PATIENT
  Age: 3 Year
  Sex: Male

DRUGS (1)
  1. GENOTROPIN GOQUICK [Suspect]
     Indication: PRADER-WILLI SYNDROME
     Dosage: 0.6 MG, 1X/DAY
     Route: 058
     Dates: start: 20110126, end: 20110206

REACTIONS (1)
  - SLEEP APNOEA SYNDROME [None]
